FAERS Safety Report 7198743-2 (Version None)
Quarter: 2010Q4

REPORT INFORMATION
  Report Type: 
  Country: None (occurrence: None)
  Receive Date: 20101227
  Receipt Date: 20100429
  Transmission Date: 20110411
  Serious: Yes (Other)
  Sender: FDA-Public Use
  Company Number: US-ABBOTT-10P-163-0641879-00

PATIENT
  Sex: Male
  Weight: 93.524 kg

DRUGS (4)
  1. LUPRON DEPOT [Suspect]
     Indication: PROSTATE CANCER
     Route: 030
     Dates: end: 20100404
  2. UNKNOWN SEDATIVE [Suspect]
     Indication: PROSTATIC OPERATION
     Route: 042
     Dates: start: 20100325, end: 20100325
  3. LIPITOR [Concomitant]
     Indication: CEREBROVASCULAR ACCIDENT PROPHYLAXIS
  4. ALTACE [Concomitant]
     Indication: CEREBROVASCULAR ACCIDENT PROPHYLAXIS

REACTIONS (9)
  - BREAST SWELLING [None]
  - FATIGUE [None]
  - HYPERHIDROSIS [None]
  - LOSS OF LIBIDO [None]
  - OEDEMA [None]
  - PROSTATE CANCER [None]
  - RETINAL INFARCTION [None]
  - SCOTOMA [None]
  - WEIGHT INCREASED [None]
